FAERS Safety Report 14378024 (Version 1)
Quarter: 2018Q1

REPORT INFORMATION
  Report Type: Spontaneous
  Country: US (occurrence: US)
  Receive Date: 20180111
  Receipt Date: 20180111
  Transmission Date: 20180509
  Serious: No
  Sender: FDA-Public Use
  Company Number: US-BIOMARINAP-US-2018-116625

PATIENT
  Sex: Female

DRUGS (1)
  1. NAGLAZYME [Suspect]
     Active Substance: GALSULFASE
     Indication: MUCOPOLYSACCHARIDOSIS VI
     Route: 065

REACTIONS (5)
  - Painful respiration [Unknown]
  - Muscle strain [Unknown]
  - Oxygen saturation decreased [Unknown]
  - Fall [Unknown]
  - Axillary pain [Unknown]

NARRATIVE: CASE EVENT DATE: 201712
